FAERS Safety Report 7632539-X (Version None)
Quarter: 2011Q3

REPORT INFORMATION
  Report Type: 
  Country: None (occurrence: None)
  Receive Date: 20110725
  Receipt Date: 20101102
  Transmission Date: 20111222
  Serious: No
  Sender: FDA-Public Use
  Company Number: US-BRISTOL-MYERS SQUIBB COMPANY-15320468

PATIENT
  Age: 85 Year
  Sex: Female
  Weight: 84 kg

DRUGS (11)
  1. VITAMIN B-12 [Concomitant]
     Dosage: TAKEN AT EVENING
  2. CENTRUM SILVER [Concomitant]
     Dosage: AT MORNING
  3. PRESERVISION AREDS [Concomitant]
     Dosage: PRESERVISION EYE PILL
  4. AMIODARONE HCL [Concomitant]
  5. CALCIUM CARBONATE [Concomitant]
  6. VITAMIN D [Concomitant]
  7. WARFARIN SODIUM [Suspect]
     Dosage: WARFARIN 3MG TABS 1DF:2 TABS 3 DAYS PER WEEK (6 MG TUESDAY,THURSDAY,SUNDAY)+1.5 TABLET OTHER DAYS
     Dates: start: 20090801
  8. DILTIAZEM HCL [Concomitant]
     Dosage: AT MORNING
  9. BONIVA [Concomitant]
  10. DIOVAN [Concomitant]
     Dosage: AT EVENING
  11. CHONDROITIN [Concomitant]

REACTIONS (1)
  - INTERNATIONAL NORMALISED RATIO DECREASED [None]
